FAERS Safety Report 23713973 (Version 1)
Quarter: 2024Q2

REPORT INFORMATION
  Report Type: Spontaneous
  Country: CN (occurrence: None)
  Receive Date: 20240405
  Receipt Date: 20240405
  Transmission Date: 20240716
  Serious: Yes (Other)
  Sender: FDA-Public Use
  Company Number: 2024A078959

PATIENT
  Age: 70 Year
  Sex: Male
  Weight: 74 kg

DRUGS (6)
  1. BUDESONIDE [Suspect]
     Active Substance: BUDESONIDE
     Indication: Cough
     Route: 055
     Dates: start: 20240324, end: 20240324
  2. BUDESONIDE [Suspect]
     Active Substance: BUDESONIDE
     Indication: Asphyxia
     Route: 055
     Dates: start: 20240324, end: 20240324
  3. BUDESONIDE [Suspect]
     Active Substance: BUDESONIDE
     Indication: Wheezing
     Route: 055
     Dates: start: 20240324, end: 20240324
  4. ACETYLCYSTEINE [Suspect]
     Active Substance: ACETYLCYSTEINE
     Indication: Cough
     Route: 055
     Dates: start: 20240324, end: 20240324
  5. ACETYLCYSTEINE [Suspect]
     Active Substance: ACETYLCYSTEINE
     Indication: Asphyxia
     Route: 055
     Dates: start: 20240324, end: 20240324
  6. ACETYLCYSTEINE [Suspect]
     Active Substance: ACETYLCYSTEINE
     Indication: Wheezing
     Route: 055
     Dates: start: 20240324, end: 20240324

REACTIONS (4)
  - Asphyxia [Recovering/Resolving]
  - Cardiac flutter [Recovering/Resolving]
  - Chest discomfort [Recovering/Resolving]
  - Wheezing [Recovering/Resolving]

NARRATIVE: CASE EVENT DATE: 20240324
